FAERS Safety Report 10029429 (Version 1)
Quarter: 2014Q1

REPORT INFORMATION
  Report Type: Report from Study
  Country: BR (occurrence: BR)
  Receive Date: 20140322
  Receipt Date: 20140322
  Transmission Date: 20141002
  Serious: Yes (Hospitalization, Other)
  Sender: FDA-Public Use
  Company Number: PHHY2014BR034514

PATIENT
  Sex: Male
  Weight: 70 kg

DRUGS (3)
  1. DIOVAN AMLO FIX [Suspect]
     Indication: HYPERTENSION
     Dosage: 1 DF (160/30MG), IN THE MORNING
     Route: 048
     Dates: end: 20140313
  2. JANUMET [Concomitant]
     Indication: DIABETES MELLITUS
     Dosage: 5/1000 MG, UNK
  3. RIVOTRIL [Concomitant]
     Indication: IRRITABILITY
     Dosage: UNK UKN, UNK

REACTIONS (3)
  - Cerebrovascular accident [Recovering/Resolving]
  - Gait disturbance [Recovering/Resolving]
  - Drug intolerance [Unknown]
